FAERS Safety Report 11282509 (Version 1)
Quarter: 2015Q3

REPORT INFORMATION
  Report Type: Spontaneous
  Country: CN (occurrence: CN)
  Receive Date: 20150720
  Receipt Date: 20150720
  Transmission Date: 20151125
  Serious: Yes (Hospitalization, Other)
  Sender: FDA-Public Use
  Company Number: CN-009507513-1507CHN007192

PATIENT
  Age: 84 Year
  Sex: Male

DRUGS (2)
  1. PROSCAR [Suspect]
     Active Substance: FINASTERIDE
     Indication: BENIGN PROSTATIC HYPERPLASIA
     Dosage: 5 MG, QD
     Route: 048
     Dates: start: 2005, end: 2012
  2. PROSCAR [Suspect]
     Active Substance: FINASTERIDE
     Dosage: 5 MG, QD
     Route: 048
     Dates: start: 2012

REACTIONS (3)
  - Inappropriate schedule of drug administration [Unknown]
  - Prostatectomy [Recovered/Resolved]
  - Pollakiuria [Recovering/Resolving]

NARRATIVE: CASE EVENT DATE: 2005
